FAERS Safety Report 18109827 (Version 1)
Quarter: 2020Q3

REPORT INFORMATION
  Report Type: Spontaneous
  Country: US (occurrence: US)
  Receive Date: 20200804
  Receipt Date: 20200804
  Transmission Date: 20201103
  Serious: No
  Sender: FDA-Public Use
  Company Number: US-APOTEX-2020AP013597

PATIENT
  Age: 63 Year
  Sex: Male

DRUGS (6)
  1. CYCLOSPORINE. [Suspect]
     Active Substance: CYCLOSPORINE
     Indication: IMMUNOSUPPRESSION
     Dosage: UNK
     Route: 065
  2. ETHAMBUTOL [Concomitant]
     Active Substance: ETHAMBUTOL HYDROCHLORIDE
     Indication: DISSEMINATED MYCOBACTERIUM AVIUM COMPLEX INFECTION
     Dosage: 1600 MILLIGRAM, QD
     Route: 065
  3. AZITHROMYCIN ANHYDROUS. [Concomitant]
     Active Substance: AZITHROMYCIN ANHYDROUS
     Indication: DISSEMINATED MYCOBACTERIUM AVIUM COMPLEX INFECTION
     Dosage: 500 MILLIGRAM, QD
     Route: 065
  4. MYCOPHENOLIC ACID. [Suspect]
     Active Substance: MYCOPHENOLIC ACID
     Indication: IMMUNOSUPPRESSION
     Dosage: UNK
     Route: 065
  5. PREDNISONE. [Suspect]
     Active Substance: PREDNISONE
     Indication: IMMUNOSUPPRESSION
     Dosage: 10 MILLIGRAM, QD
     Route: 065
  6. RIFABUTIN. [Concomitant]
     Active Substance: RIFABUTIN
     Indication: DISSEMINATED MYCOBACTERIUM AVIUM COMPLEX INFECTION
     Dosage: 300 MILLIGRAM, QD
     Route: 065

REACTIONS (1)
  - Lymphopenia [Unknown]
